FAERS Safety Report 25912412 (Version 1)
Quarter: 2025Q4

REPORT INFORMATION
  Report Type: Spontaneous
  Country: EU (occurrence: EU)
  Receive Date: 20251013
  Receipt Date: 20251013
  Transmission Date: 20260118
  Serious: Yes (Disabling)
  Sender: AMNEAL
  Company Number: EU-AMNEAL PHARMACEUTICALS-2025-AMRX-03829

PATIENT

DRUGS (10)
  1. ONGENTYS [Suspect]
     Active Substance: OPICAPONE
     Indication: Parkinson^s disease
     Dosage: 0-0-1-0, 1 DAILY HOUR DISTANCE TO MADOPAR
     Route: 048
     Dates: start: 20250829
  2. AMANTADINE [Concomitant]
     Active Substance: AMANTADINE
     Indication: Product used for unknown indication
     Dosage: 100 MILLIGRAM 1-1-0-0 DAILY
     Route: 048
     Dates: start: 20250829
  3. PIRIBEDIL [Concomitant]
     Active Substance: PIRIBEDIL
     Indication: Product used for unknown indication
     Dosage: 50 MILLIGRAM 2-1-1-0 DAILY
     Route: 048
  4. PIRIBEDIL [Concomitant]
     Active Substance: PIRIBEDIL
     Indication: Product used for unknown indication
     Dosage: 50 MILLIGRAM
     Route: 065
  5. CARBIDOPA\LEVODOPA [Concomitant]
     Active Substance: CARBIDOPA\LEVODOPA
     Indication: Product used for unknown indication
     Dosage: 100/25 MG 0-0-0-1, DAILY
     Route: 065
     Dates: start: 20250829
  6. FENTANYL [Concomitant]
     Active Substance: FENTANYL
     Indication: Product used for unknown indication
     Dosage: 25 MCG/H APPLIED 1-0-0-0, EVERY 3 DAYS
     Route: 062
     Dates: start: 20250826
  7. EZETIMIBE\SIMVASTATIN [Concomitant]
     Active Substance: EZETIMIBE\SIMVASTATIN
     Indication: Product used for unknown indication
     Dosage: 10 MG/10 NG 0-0-1-0, DAILY
     Route: 065
     Dates: start: 20240811
  8. BENSERAZIDE HYDROCHLORIDE\LEVODOPA [Concomitant]
     Active Substance: BENSERAZIDE HYDROCHLORIDE\LEVODOPA
     Indication: Product used for unknown indication
     Dosage: 100 MG/25 MG 08:00, 12:00, 16:00, AND 20:00 AS 1 TABLET EACH, DAILY AT LEAST 60 MINUTES INTERVAL FRO
     Route: 065
     Dates: start: 20250829
  9. BENSERAZIDE HYDROCHLORIDE\LEVODOPA [Concomitant]
     Active Substance: BENSERAZIDE HYDROCHLORIDE\LEVODOPA
     Indication: Product used for unknown indication
     Dosage: 100 MG/25 MG 1 TABLET AT 07:00, DAILY
     Route: 065
     Dates: start: 20250829
  10. METFORMIN [Concomitant]
     Active Substance: METFORMIN HYDROCHLORIDE
     Indication: Product used for unknown indication
     Dosage: 500 MG 1-0-1-0, DAILY
     Route: 065
     Dates: start: 20240811

REACTIONS (2)
  - Dysphagia [Not Recovered/Not Resolved]
  - Therapy interrupted [Unknown]
